FAERS Safety Report 19220422 (Version 1)
Quarter: 2021Q2

REPORT INFORMATION
  Report Type: Report from Study
  Country: US (occurrence: US)
  Receive Date: 20210506
  Receipt Date: 20210506
  Transmission Date: 20210717
  Serious: Yes (Hospitalization)
  Sender: FDA-Public Use
  Company Number: US-ROCHE-2823895

PATIENT
  Age: 53 Year
  Sex: Female
  Weight: 81.2 kg

DRUGS (6)
  1. INCB039110 [Suspect]
     Active Substance: ITACITINIB
     Indication: BRONCHIOLITIS OBLITERANS SYNDROME
     Dosage: LAST DOSE OF  ITACITINIB (INCB039110) PRIOR TO THE SAE WAS TAKEN ON 30/MAR/2021
     Route: 048
     Dates: start: 20210217, end: 20210330
  2. OMEPRAZOLE. [Concomitant]
     Active Substance: OMEPRAZOLE
     Dates: start: 201611
  3. SULFAMETHOXAZOLE/TRIMETHOPRIM [Concomitant]
     Active Substance: SULFAMETHOXAZOLE\TRIMETHOPRIM
     Dates: start: 20170914
  4. VALGANCICLOVIR. [Suspect]
     Active Substance: VALGANCICLOVIR
     Indication: BRONCHIOLITIS OBLITERANS SYNDROME
     Route: 065
     Dates: start: 20210217, end: 20210318
  5. MYCOPHENOLATE MOFETIL. [Suspect]
     Active Substance: MYCOPHENOLATE MOFETIL
     Indication: PRODUCT USED FOR UNKNOWN INDICATION
     Route: 065
     Dates: start: 20170914
  6. INCB039110 [Suspect]
     Active Substance: ITACITINIB
     Dosage: LAST DOSE OF  ITACITINIB (INCB039110) PRIOR TO THE SAE WAS TAKEN ON 30/MAR/2021
     Route: 048
     Dates: start: 20210330

REACTIONS (2)
  - Febrile neutropenia [Recovering/Resolving]
  - Large intestine infection [Recovering/Resolving]

NARRATIVE: CASE EVENT DATE: 20210330
